FAERS Safety Report 12850271 (Version 4)
Quarter: 2018Q1

REPORT INFORMATION
  Report Type: Report from Study
  Country: CA (occurrence: CA)
  Receive Date: 20161014
  Receipt Date: 20180110
  Transmission Date: 20180508
  Serious: Yes (Other)
  Sender: FDA-Public Use
  Company Number: CA-UCBSA-2016039257

PATIENT
  Age: 0 Year
  Sex: Male
  Weight: 1.98 kg

DRUGS (5)
  1. CERTOLIZUMAB PEGOL RA [Suspect]
     Active Substance: CERTOLIZUMAB PEGOL
     Dosage: 400 MG, EV 2 WEEKS(QOW)
     Route: 063
     Dates: start: 20160723, end: 20170330
  2. ASA [Concomitant]
     Active Substance: ASPIRIN
     Indication: HYPERTENSION
     Dosage: 162 MG, ONCE DAILY (QD)
     Route: 064
     Dates: end: 20160722
  3. ADALAT CC [Concomitant]
     Active Substance: NIFEDIPINE
     Indication: HYPERTENSION
     Dosage: 30 MG, UNK
     Route: 064
  4. PREDNISONE. [Concomitant]
     Active Substance: PREDNISONE
     Indication: RHEUMATOID ARTHRITIS
     Dosage: 5-10 MG ONCE DAILY
     Route: 064
  5. CERTOLIZUMAB PEGOL RA [Suspect]
     Active Substance: CERTOLIZUMAB PEGOL
     Indication: RHEUMATOID ARTHRITIS
     Dosage: 400 MG, EV 2 WEEKS(QOW)
     Route: 064
     Dates: start: 20160720, end: 20160723

REACTIONS (3)
  - Exposure via breast milk [Unknown]
  - Foetal exposure during pregnancy [Unknown]
  - Premature baby [Unknown]

NARRATIVE: CASE EVENT DATE: 20160720
